FAERS Safety Report 4725670-X (Version None)
Quarter: 2005Q3

REPORT INFORMATION
  Report Type: 
  Country: None (occurrence: None)
  Receive Date: 20050727
  Receipt Date: 20050718
  Transmission Date: 20060218
  Serious: Yes (Other)
  Sender: FDA-Public Use
  Company Number: PHBS2005SG10247

PATIENT
  Age: 71 Year
  Sex: Female

DRUGS (3)
  1. DEXAMETHASONE [Concomitant]
     Dosage: 20 MG, QD
  2. THALIDOMIDE [Concomitant]
     Dosage: 50 MG, QW
  3. ZOMETA [Suspect]
     Indication: MULTIPLE MYELOMA
     Dosage: 4 MG
     Route: 042

REACTIONS (3)
  - ASEPTIC NECROSIS BONE [None]
  - OSTEOMYELITIS [None]
  - TOOTH EXTRACTION [None]
